FAERS Safety Report 6984793-5 (Version None)
Quarter: 2010Q3

REPORT INFORMATION
  Report Type: 
  Country: None (occurrence: None)
  Receive Date: 20100914
  Receipt Date: 20100914
  Transmission Date: 20110219
  Serious: Yes (Other)
  Sender: FDA-Public Use
  Company Number: None

PATIENT
  Age: 48 Year
  Sex: Female
  Weight: 89.3586 kg

DRUGS (2)
  1. LIPITOR [Suspect]
     Indication: CORONARY ARTERIAL STENT INSERTION
     Dosage: ONE TABLET DAILY PO
     Route: 048
     Dates: start: 20100729, end: 20100909
  2. PLAVIX [Suspect]
     Indication: CORONARY ARTERIAL STENT INSERTION
     Dosage: ONE TABLET DAILY PO
     Route: 048
     Dates: start: 20090729, end: 20100909

REACTIONS (2)
  - PRODUCT LABEL ISSUE [None]
  - PRODUCT QUALITY ISSUE [None]
